FAERS Safety Report 9007452 (Version 1)
Quarter: 2013Q1

REPORT INFORMATION
  Report Type: Spontaneous
  Country: FR (occurrence: FR)
  Receive Date: 20130110
  Receipt Date: 20130110
  Transmission Date: 20140127
  Serious: Yes (Other)
  Sender: FDA-Public Use
  Company Number: FR-GILEAD-2013-0067549

PATIENT
  Age: 26 Year
  Sex: Female

DRUGS (2)
  1. VIREAD [Suspect]
     Indication: HEPATITIS B
     Dosage: 1 UNK, UNK
     Route: 048
     Dates: start: 2009
  2. LEELOO [Concomitant]
     Indication: CONTRACEPTION
     Dosage: UNK
     Dates: start: 201206

REACTIONS (3)
  - Myalgia [Not Recovered/Not Resolved]
  - Blood creatine phosphokinase increased [Not Recovered/Not Resolved]
  - Oedema peripheral [Not Recovered/Not Resolved]
